FAERS Safety Report 6056084-0 (Version None)
Quarter: 2009Q1

REPORT INFORMATION
  Report Type: 
  Country: None (occurrence: None)
  Receive Date: 20090126
  Receipt Date: 20090116
  Transmission Date: 20090719
  Serious: Yes (Other)
  Sender: FDA-Public Use
  Company Number: 2009JP000307

PATIENT
  Age: 30 Year
  Sex: Female

DRUGS (3)
  1. PROTOPIC [Suspect]
     Indication: DERMATITIS ATOPIC
     Dosage: 0.1 %, TOPICAL
     Route: 061
  2. RINDERON-V [Concomitant]
  3. PETROLATUM (PETROLATUM) [Concomitant]

REACTIONS (1)
  - NASOPHARYNGITIS [None]
